FAERS Safety Report 15106324 (Version 1)
Quarter: 2018Q3

REPORT INFORMATION
  Report Type: Spontaneous
  Country: US (occurrence: US)
  Receive Date: 20180704
  Receipt Date: 20180704
  Transmission Date: 20181010
  Serious: Yes (Other)
  Sender: FDA-Public Use
  Company Number: US-BRISTOL-MYERS SQUIBB COMPANY-BMS-2018-059467

PATIENT
  Sex: Female

DRUGS (5)
  1. ENBREL [Suspect]
     Active Substance: ETANERCEPT
     Indication: RHEUMATOID ARTHRITIS
     Route: 065
  2. ORENCIA [Suspect]
     Active Substance: ABATACEPT
     Indication: PRODUCT USED FOR UNKNOWN INDICATION
     Route: 058
  3. HUMIRA [Suspect]
     Active Substance: ADALIMUMAB
     Indication: RHEUMATOID ARTHRITIS
     Route: 065
  4. KEVZARA [Suspect]
     Active Substance: SARILUMAB
     Indication: RHEUMATOID ARTHRITIS
     Route: 065
  5. METHOTREXATE (METHOTREXATE SODIUM) [Suspect]
     Active Substance: METHOTREXATE SODIUM
     Indication: RHEUMATOID ARTHRITIS
     Dosage: 20 MG, QWK
     Route: 058

REACTIONS (13)
  - Lower respiratory tract infection [Not Recovered/Not Resolved]
  - Gastrointestinal disorder [Unknown]
  - Upper respiratory tract infection [Not Recovered/Not Resolved]
  - Rheumatoid arthritis [Unknown]
  - Drug hypersensitivity [Unknown]
  - Vomiting [Unknown]
  - Ear infection [Unknown]
  - Dizziness [Unknown]
  - Contraindicated product administered [Unknown]
  - Urinary tract infection [Not Recovered/Not Resolved]
  - Localised infection [Not Recovered/Not Resolved]
  - Drug ineffective [Unknown]
  - Alopecia [Unknown]

NARRATIVE: CASE EVENT DATE: 2014
